FAERS Safety Report 19776594 (Version 1)
Quarter: 2021Q3

REPORT INFORMATION
  Report Type: Spontaneous
  Country: CN (occurrence: CN)
  Receive Date: 20210902
  Receipt Date: 20210902
  Transmission Date: 20211014
  Serious: Yes (Other)
  Sender: FDA-Public Use
  Company Number: CN-SUN PHARMACEUTICAL INDUSTRIES LTD-2021R1-309256

PATIENT
  Age: 78 Year
  Sex: Male

DRUGS (4)
  1. GEMCITABINE. [Suspect]
     Active Substance: GEMCITABINE
     Dosage: UNK
     Route: 065
     Dates: start: 20190612
  2. GEMCITABINE. [Suspect]
     Active Substance: GEMCITABINE
     Indication: CHEMOTHERAPY
     Dosage: 1.5 GRAM, QD (ON D1 AND D8; Q21D)
     Route: 065
     Dates: start: 20190415
  3. TORIPALIMAB. [Concomitant]
     Active Substance: TORIPALIMAB
     Indication: CHEMOTHERAPY
     Dosage: 240 MILLIGRAM, QD (D1, Q21D)
     Route: 065
     Dates: start: 20190415
  4. TORIPALIMAB. [Concomitant]
     Active Substance: TORIPALIMAB
     Dosage: UNK (2 CYCLES)
     Route: 065
     Dates: start: 20190612

REACTIONS (1)
  - Therapy partial responder [Unknown]
